FAERS Safety Report 21373141 (Version 1)
Quarter: 2022Q3

REPORT INFORMATION
  Report Type: Spontaneous
  Country: US (occurrence: US)
  Receive Date: 20220924
  Receipt Date: 20220924
  Transmission Date: 20221026
  Serious: No
  Sender: FDA-Public Use
  Company Number: US-CTI BIOPHARMA-2022US02889

PATIENT

DRUGS (1)
  1. VONJO [Suspect]
     Active Substance: PACRITINIB
     Indication: Polycythaemia vera
     Dosage: 200 MILLIGRAM, BID
     Dates: start: 20220613

REACTIONS (8)
  - Pain [Unknown]
  - Blood glucose increased [Recovering/Resolving]
  - Fatigue [Unknown]
  - Bedridden [Unknown]
  - Life expectancy shortened [Unknown]
  - Headache [Unknown]
  - Haematocrit abnormal [Unknown]
  - Epistaxis [None]

NARRATIVE: CASE EVENT DATE: 20220701
